FAERS Safety Report 16840422 (Version 2)
Quarter: 2019Q4

REPORT INFORMATION
  Report Type: Spontaneous
  Country: GB (occurrence: GB)
  Receive Date: 20190923
  Receipt Date: 20191018
  Transmission Date: 20200122
  Serious: Yes (Disabling)
  Sender: FDA-Public Use
  Company Number: GB-MYLANLABS-2019M1088590

PATIENT
  Weight: 87 kg

DRUGS (4)
  1. CLOZAPINE. [Suspect]
     Active Substance: CLOZAPINE
     Indication: SCHIZOPHRENIA
     Dosage: 100 MILLIGRAM, QD
     Route: 065
     Dates: start: 2014
  2. OMACOR [Concomitant]
     Active Substance: OMEGA-3-ACID ETHYL ESTERS
     Indication: MYOCARDIAL INFARCTION
     Dosage: UNK
     Route: 065
  3. ATORVASTATIN [Concomitant]
     Active Substance: ATORVASTATIN
     Indication: PRODUCT USED FOR UNKNOWN INDICATION
     Dosage: UNK
     Route: 065
  4. BEZAFIBRATE [Concomitant]
     Active Substance: BEZAFIBRATE
     Indication: PRODUCT USED FOR UNKNOWN INDICATION
     Dosage: UNK
     Route: 065

REACTIONS (12)
  - Type 2 diabetes mellitus [Unknown]
  - Speech disorder [Unknown]
  - Enuresis [Unknown]
  - Sleep disorder [Unknown]
  - Fatigue [Unknown]
  - Nasal congestion [Unknown]
  - Functional gastrointestinal disorder [Unknown]
  - Social anxiety disorder [Unknown]
  - Visual impairment [Unknown]
  - Hypercholesterolaemia [Unknown]
  - Cardiometabolic syndrome [Unknown]
  - Hyperacusis [Unknown]
